FAERS Safety Report 26133161 (Version 1)
Quarter: 2025Q4

REPORT INFORMATION
  Report Type: Spontaneous
  Country: CA (occurrence: CA)
  Receive Date: 20251209
  Receipt Date: 20251209
  Transmission Date: 20260118
  Serious: Yes (Other)
  Sender: AUROBINDO
  Company Number: CA-AUROBINDO-AUR-APL-2025-061265

PATIENT
  Age: 62 Year
  Sex: Female
  Weight: 60 kg

DRUGS (5)
  1. PEMETREXED DISODIUM [Suspect]
     Active Substance: PEMETREXED DISODIUM
     Indication: Lung adenocarcinoma stage IV
     Dosage: 810 MILLIGRAM (1 EVERY 8 WEEKS)
  2. RIFAMPIN [Suspect]
     Active Substance: RIFAMPIN
     Indication: Latent tuberculosis
     Dosage: 600 MILLIGRAM, ONCE A DAY
  3. ISONIAZID [Suspect]
     Active Substance: ISONIAZID
     Indication: Latent tuberculosis
     Dosage: 300 MILLIGRAM, ONCE A DAY
  4. LEFLUNOMIDE [Suspect]
     Active Substance: LEFLUNOMIDE
     Indication: Arthritis
     Dosage: 20 MILLIGRAM, ONCE A DAY
  5. KEYTRUDA [Suspect]
     Active Substance: PEMBROLIZUMAB
     Indication: Lung adenocarcinoma stage IV
     Dosage: 115 MILLIGRAM (1 EVERY 4 WEEKS)

REACTIONS (2)
  - Hepatotoxicity [Recovered/Resolved]
  - Liver function test abnormal [Recovered/Resolved]
